FAERS Safety Report 8139939-2 (Version None)
Quarter: 2012Q1

REPORT INFORMATION
  Report Type: 
  Country: None (occurrence: None)
  Receive Date: 20120215
  Receipt Date: 20120206
  Transmission Date: 20120608
  Serious: Yes (Hospitalization, Other)
  Sender: FDA-Public Use
  Company Number: US-ASTRAZENECA-2011SE09863

PATIENT
  Age: 65 Year
  Sex: Female
  Weight: 62.6 kg

DRUGS (22)
  1. CRESTOR [Suspect]
     Route: 048
  2. CARAFATE [Concomitant]
     Dosage: BEFORE MEALS AND AT BEDTIME
     Route: 048
  3. SOMA [Concomitant]
  4. CLONIDINE [Concomitant]
  5. NEURONTIN [Concomitant]
  6. MAGNESIUM [Concomitant]
  7. FISH OIL [Concomitant]
  8. LOVENOX [Concomitant]
     Dosage: 100 MILLIGRAM PER MILLILITER, 30 MILLIGRAM ONCE A DAY
  9. NEXIUM [Suspect]
     Indication: BARRETT'S OESOPHAGUS
     Route: 048
     Dates: end: 20110216
  10. TRAMADOL HCL [Concomitant]
  11. BENADRYL [Concomitant]
  12. IODINE [Concomitant]
  13. NEXIUM [Suspect]
     Route: 048
  14. NEXIUM [Suspect]
     Route: 048
  15. DIOVAN [Concomitant]
  16. AMBIEN [Concomitant]
  17. HYDROCODONE BITARTRATE AND ACETAMINOPHEN [Concomitant]
     Dosage: 10/500 MILLIGRAM, ONE TABLET FOUR TIMES A DAY.
  18. THYROID TAB [Concomitant]
  19. COREG [Concomitant]
  20. ASPIRIN [Concomitant]
  21. NEXIUM [Suspect]
     Indication: GASTROOESOPHAGEAL REFLUX DISEASE
     Route: 048
     Dates: end: 20110216
  22. MS CONTIN [Concomitant]

REACTIONS (18)
  - PNEUMONIA ASPIRATION [None]
  - CONSTIPATION [None]
  - MALAISE [None]
  - LIMB CRUSHING INJURY [None]
  - DIARRHOEA [None]
  - DRUG DOSE OMISSION [None]
  - BARRETT'S OESOPHAGUS [None]
  - IRRITABLE BOWEL SYNDROME [None]
  - THROMBOSIS [None]
  - ABNORMAL LOSS OF WEIGHT [None]
  - BRADYCARDIA [None]
  - DEVICE OCCLUSION [None]
  - PULMONARY OEDEMA [None]
  - GASTROOESOPHAGEAL REFLUX DISEASE [None]
  - DIVERTICULUM [None]
  - OEDEMA PERIPHERAL [None]
  - DRUG INTOLERANCE [None]
  - OFF LABEL USE [None]
